FAERS Safety Report 7850583-4 (Version None)
Quarter: 2011Q4

REPORT INFORMATION
  Report Type: 
  Country: None (occurrence: None)
  Receive Date: 20111024
  Receipt Date: 20111011
  Transmission Date: 20120403
  Serious: Yes (Other)
  Sender: FDA-Public Use
  Company Number: 2011PV000058

PATIENT
  Sex: Male

DRUGS (4)
  1. METHOTREXATE [Concomitant]
  2. CYTARABINE [Concomitant]
  3. DEPOCYT [Suspect]
     Indication: PROPHYLAXIS
     Dosage: ;INTH
     Route: 037
  4. DEXAMETHASONE [Concomitant]

REACTIONS (2)
  - RETINAL HAEMORRHAGE [None]
  - PAPILLOEDEMA [None]
